FAERS Safety Report 6748707-5 (Version None)
Quarter: 2010Q2

REPORT INFORMATION
  Report Type: 
  Country: None (occurrence: None)
  Receive Date: 20100601
  Receipt Date: 20100517
  Transmission Date: 20101027
  Serious: Yes (Hospitalization, Other)
  Sender: FDA-Public Use
  Company Number: PHHY2010JP22369

PATIENT
  Sex: Male
  Weight: 63 kg

DRUGS (12)
  1. ZOMETA [Suspect]
     Indication: METASTASES TO BONE
     Dosage: 4 MG PER ADMINISTRATION
     Route: 042
     Dates: start: 20080903, end: 20100224
  2. DORIPENEM MONOHYDRATE [Concomitant]
     Dosage: 6 DF; UNK
     Route: 042
     Dates: start: 20100324, end: 20100329
  3. ZOSYN [Concomitant]
     Dosage: 4.5 G DAILY
     Route: 042
     Dates: start: 20100403, end: 20100422
  4. TAXOL [Concomitant]
     Dosage: UNK
     Route: 042
     Dates: start: 20080711, end: 20100310
  5. TS 1 [Concomitant]
     Dosage: 120 MG
     Route: 048
     Dates: start: 20080819
  6. PARIET [Concomitant]
     Dosage: 10 MG
     Route: 048
     Dates: start: 20080821
  7. MUCOSTA [Concomitant]
     Dosage: 300 MG
     Route: 048
     Dates: start: 20080821
  8. MOBIC [Concomitant]
     Dosage: UNK
     Route: 048
     Dates: start: 20080827
  9. OXYCONTIN [Concomitant]
     Dosage: 30 MG
     Route: 048
     Dates: start: 20100210
  10. LANDSEN [Concomitant]
     Dosage: 1.5 MG
     Route: 048
     Dates: start: 20080821
  11. RINDERON [Concomitant]
     Dosage: 1 MG
     Route: 048
     Dates: start: 20080821
  12. MAGMITT KENEI [Concomitant]
     Dosage: 990 MG
     Route: 048
     Dates: start: 20080821

REACTIONS (16)
  - ABSCESS JAW [None]
  - CATHETER PLACEMENT [None]
  - HAEMATOCRIT DECREASED [None]
  - HAEMOGLOBIN DECREASED [None]
  - INCISIONAL DRAINAGE [None]
  - NECROSIS [None]
  - OSTEITIS [None]
  - OSTEONECROSIS OF JAW [None]
  - PAIN [None]
  - PAIN IN JAW [None]
  - PERIODONTITIS [None]
  - PURULENT DISCHARGE [None]
  - RED BLOOD CELL COUNT DECREASED [None]
  - SKIN DISORDER [None]
  - STOMATITIS [None]
  - SWELLING FACE [None]
